FAERS Safety Report 5865026-X (Version None)
Quarter: 2008Q3

REPORT INFORMATION
  Report Type: 
  Country: None (occurrence: None)
  Receive Date: 20080829
  Receipt Date: 20080822
  Transmission Date: 20090109
  Serious: Yes (Other)
  Sender: FDA-Public Use
  Company Number: A0695002A

PATIENT
  Age: 43 Year
  Sex: Male
  Weight: 58.2 kg

DRUGS (5)
  1. AVANDIA [Suspect]
     Dosage: 8MG PER DAY
     Route: 048
     Dates: start: 19990101, end: 20060101
  2. FORTAMET [Concomitant]
     Dates: start: 20040101, end: 20040101
  3. HUMALOG [Concomitant]
     Dates: start: 20000101
  4. LANTUS [Concomitant]
     Dates: start: 20000101
  5. ASPIRIN [Concomitant]

REACTIONS (3)
  - CARDIAC FAILURE CONGESTIVE [None]
  - CEREBROVASCULAR ACCIDENT [None]
  - MYOCARDIAL INFARCTION [None]
